FAERS Safety Report 5821983-9 (Version None)
Quarter: 2008Q3

REPORT INFORMATION
  Report Type: 
  Country: None (occurrence: None)
  Receive Date: 20080724
  Receipt Date: 20080428
  Transmission Date: 20090109
  Serious: Yes (Other)
  Sender: FDA-Public Use
  Company Number: US-MERCK-0803USA01729

PATIENT
  Age: 49 Year
  Sex: Male
  Weight: 41 kg

DRUGS (16)
  1. ISENTRESS [Suspect]
     Indication: HIV INFECTION
     Route: 048
     Dates: start: 20080301
  2. ISENTRESS [Suspect]
     Indication: ACQUIRED IMMUNODEFICIENCY SYNDROME
     Route: 048
     Dates: start: 20080301
  3. NORVIR [Concomitant]
     Indication: ACQUIRED IMMUNODEFICIENCY SYNDROME
     Route: 065
     Dates: start: 20080301
  4. LASIX [Concomitant]
     Route: 065
  5. MARINOL [Concomitant]
     Route: 065
  6. MS CONTIN [Concomitant]
     Route: 065
  7. COREG [Concomitant]
     Indication: HEART RATE INCREASED
     Route: 065
     Dates: start: 20080301
  8. PREZISTA [Concomitant]
     Route: 048
     Dates: start: 20080301
  9. VIREAD [Concomitant]
     Route: 065
  10. EMTRIVA [Concomitant]
     Indication: ACQUIRED IMMUNODEFICIENCY SYNDROME
     Route: 048
     Dates: start: 20080301
  11. PRILOSEC [Concomitant]
     Indication: GASTROINTESTINAL HAEMORRHAGE
     Route: 065
     Dates: start: 20080301
  12. AEROBID [Concomitant]
     Route: 065
  13. MEROPENEM [Concomitant]
     Route: 042
  14. CANCIDAS [Concomitant]
     Indication: FUNGAL INFECTION
     Route: 042
  15. VANCOMYCIN [Concomitant]
     Indication: STAPHYLOCOCCAL INFECTION
     Route: 042
  16. FLOMAX [Concomitant]
     Indication: URINARY RETENTION
     Route: 065

REACTIONS (4)
  - CARDIAC FAILURE [None]
  - CARDIOMYOPATHY [None]
  - IMMUNE RECONSTITUTION SYNDROME [None]
  - STAPHYLOCOCCAL SEPSIS [None]
